FAERS Safety Report 13576404 (Version 1)
Quarter: 2017Q2

REPORT INFORMATION
  Report Type: Spontaneous
  Country: FI (occurrence: FI)
  Receive Date: 20170524
  Receipt Date: 20170524
  Transmission Date: 20170830
  Serious: Yes (Disabling)
  Sender: FDA-Public Use
  Company Number: FI-TEVA-768366ISR

PATIENT
  Age: 48 Year
  Sex: Female

DRUGS (1)
  1. CIPROFLOXACIN RATIOPHARM 500 MG [Suspect]
     Active Substance: CIPROFLOXACIN
     Indication: GASTROENTERITIS VIRAL
     Dosage: 1000 MILLIGRAM DAILY;
     Dates: start: 20140912, end: 20140917

REACTIONS (4)
  - Tendon rupture [Recovered/Resolved with Sequelae]
  - Limb discomfort [Recovered/Resolved with Sequelae]
  - Joint stiffness [Recovered/Resolved with Sequelae]
  - Tenderness [Recovered/Resolved with Sequelae]

NARRATIVE: CASE EVENT DATE: 20141011
